FAERS Safety Report 5700580-X (Version None)
Quarter: 2008Q2

REPORT INFORMATION
  Report Type: 
  Country: None (occurrence: None)
  Receive Date: 20080409
  Receipt Date: 20080409
  Transmission Date: 20081010
  Serious: Yes (Other)
  Sender: FDA-Public Use
  Company Number: None

PATIENT

DRUGS (1)
  1. APLISOL [Suspect]
     Indication: SKIN TEST
     Dosage: 0.1ML ONCE INTRADERMAL
     Route: 023

REACTIONS (3)
  - ERYTHEMA [None]
  - LOCAL REACTION [None]
  - SKIN IRRITATION [None]
